FAERS Safety Report 9320505 (Version 1)
Quarter: 2013Q2

REPORT INFORMATION
  Report Type: Spontaneous
  Country: AU (occurrence: AU)
  Receive Date: 20130530
  Receipt Date: 20130530
  Transmission Date: 20140414
  Serious: Yes (Hospitalization)
  Sender: FDA-Public Use
  Company Number: AU-MYLANLABS-2013S1011145

PATIENT
  Age: 17 Year
  Sex: Female

DRUGS (1)
  1. NORTRIPTYLINE [Suspect]
     Indication: DEPRESSION
     Route: 065

REACTIONS (1)
  - Psychotic disorder [Recovered/Resolved]
